FAERS Safety Report 6614382-3 (Version None)
Quarter: 2010Q1

REPORT INFORMATION
  Report Type: 
  Country: None (occurrence: None)
  Receive Date: 20100303
  Receipt Date: 20100303
  Transmission Date: 20100710
  Serious: Yes (Hospitalization, Other)
  Sender: FDA-Public Use
  Company Number: None

PATIENT
  Sex: Female
  Weight: 86.1834 kg

DRUGS (3)
  1. NORCO [Suspect]
     Indication: SURGERY
     Dosage: 1-2 TABS EVERY 4-6 HRS PO
     Route: 048
     Dates: start: 20100114, end: 20100212
  2. NORCO [Suspect]
     Indication: JOINT DISLOCATION
     Dosage: 1-2 TABS EVERY 4-6 HRS PO
     Route: 048
     Dates: start: 20091021, end: 20100114
  3. NORCO [Suspect]
     Indication: ROTATOR CUFF SYNDROME
     Dosage: 1-2 TABS EVERY 4-6 HRS PO
     Route: 048
     Dates: start: 20091021, end: 20100114

REACTIONS (3)
  - BLOOD PRESSURE INCREASED [None]
  - FLUSHING [None]
  - MIDDLE INSOMNIA [None]
